FAERS Safety Report 6142873-0 (Version None)
Quarter: 2009Q2

REPORT INFORMATION
  Report Type: 
  Country: None (occurrence: None)
  Receive Date: 20090403
  Receipt Date: 20090330
  Transmission Date: 20091009
  Serious: Yes (Other)
  Sender: FDA-Public Use
  Company Number: DE-AMGEN-UK333663

PATIENT
  Age: 34 Year
  Sex: Female
  Weight: 69 kg

DRUGS (1)
  1. NEUPOGEN [Suspect]
     Indication: PRE-EXISTING DISEASE
     Route: 058
     Dates: start: 20080903, end: 20090302

REACTIONS (3)
  - BONE PAIN [None]
  - INFLUENZA LIKE ILLNESS [None]
  - WEIGHT DECREASED [None]
